FAERS Safety Report 9833119 (Version 2)
Quarter: 2014Q1

REPORT INFORMATION
  Report Type: Report from Study
  Country: US (occurrence: US)
  Receive Date: 20140121
  Receipt Date: 20140211
  Transmission Date: 20141002
  Serious: Yes (Death)
  Sender: FDA-Public Use
  Company Number: US-ACTELION-A-NJ2014-93708

PATIENT
  Age: 67 Year
  Sex: Male

DRUGS (1)
  1. VELETRI [Suspect]
     Indication: PULMONARY ARTERIAL HYPERTENSION
     Dosage: 18 NG/KG, PER MIN
     Route: 042
     Dates: start: 20130129, end: 20140118

REACTIONS (1)
  - Death [Fatal]
